FAERS Safety Report 7546139-3 (Version None)
Quarter: 2011Q2

REPORT INFORMATION
  Report Type: 
  Country: None (occurrence: None)
  Receive Date: 20110614
  Receipt Date: 20030815
  Transmission Date: 20111010
  Serious: Yes (Other)
  Sender: FDA-Public Use
  Company Number: PHFR2003GB03033

PATIENT
  Sex: Male

DRUGS (1)
  1. CLOZAPINE [Suspect]
     Indication: SCHIZOPHRENIA
     Dosage: 375 MG, DAILY
     Route: 048
     Dates: start: 20030714

REACTIONS (6)
  - MYOCARDIAL ISCHAEMIA [None]
  - C-REACTIVE PROTEIN INCREASED [None]
  - ATRIAL FLUTTER [None]
  - HEART RATE IRREGULAR [None]
  - ENDOCARDITIS [None]
  - CHEST PAIN [None]
